FAERS Safety Report 18222310 (Version 2)
Quarter: 2020Q3

REPORT INFORMATION
  Report Type: Spontaneous
  Country: US (occurrence: US)
  Receive Date: 20200902
  Receipt Date: 20200923
  Transmission Date: 20201103
  Serious: Yes (Hospitalization, Other)
  Sender: FDA-Public Use
  Company Number: US-LUPIN PHARMACEUTICALS INC.-2020-05257

PATIENT
  Age: 38 Year
  Sex: Female

DRUGS (1)
  1. ZIPRASIDONE. [Suspect]
     Active Substance: ZIPRASIDONE
     Indication: BIPOLAR I DISORDER
     Dosage: 20 MILLIGRAM, BID (EVERY 12?HOURS)
     Route: 048
     Dates: start: 20181209, end: 20181215

REACTIONS (8)
  - Athetosis [Recovering/Resolving]
  - Tremor [Recovering/Resolving]
  - Dysphagia [Recovering/Resolving]
  - Akathisia [Recovering/Resolving]
  - Dyskinesia [Recovering/Resolving]
  - Hyperkinesia [Recovering/Resolving]
  - Condition aggravated [Recovering/Resolving]
  - Protrusion tongue [Recovering/Resolving]
